FAERS Safety Report 8263521-X (Version None)
Quarter: 2012Q2

REPORT INFORMATION
  Report Type: 
  Country: None (occurrence: None)
  Receive Date: 20120405
  Receipt Date: 20120327
  Transmission Date: 20120825
  Serious: No
  Sender: FDA-Public Use
  Company Number: US-B.I. PHARMACEUTICALS,INC./RIDGEFIELD-2012-BP-05802BP

PATIENT
  Sex: Female

DRUGS (2)
  1. SPIRIVA [Suspect]
     Dosage: 18 MCG
     Route: 055
     Dates: start: 20120301
  2. SPIRIVA [Suspect]
     Dosage: 36 MCG
     Route: 055
     Dates: start: 20120301, end: 20120301

REACTIONS (3)
  - INCORRECT DOSE ADMINISTERED [None]
  - CHEST DISCOMFORT [None]
  - DYSPHONIA [None]
